FAERS Safety Report 10021756 (Version 1)
Quarter: 2014Q1

REPORT INFORMATION
  Report Type: Spontaneous
  Country: US (occurrence: None)
  Receive Date: 20140318
  Receipt Date: 20140318
  Transmission Date: 20141002
  Serious: Yes (Other)
  Sender: FDA-Public Use
  Company Number: None

PATIENT
  Age: 31 Year
  Sex: Female

DRUGS (6)
  1. SERTRALINE [Suspect]
     Dosage: 1/2 TABLET QD ORAL
     Route: 048
  2. IMPRAMINE [Concomitant]
  3. LEVOTHYROXINE [Concomitant]
  4. METFORMIN [Concomitant]
  5. GLIPIZIDE [Concomitant]
  6. ATORVASTATIN [Concomitant]

REACTIONS (1)
  - Dyspepsia [None]
